FAERS Safety Report 18927633 (Version 1)
Quarter: 2021Q1

REPORT INFORMATION
  Report Type: Spontaneous
  Country: US (occurrence: US)
  Receive Date: 20210223
  Receipt Date: 20210223
  Transmission Date: 20210420
  Serious: No
  Sender: FDA-Public Use
  Company Number: None

PATIENT
  Age: 41 Year
  Sex: Female
  Weight: 135 kg

DRUGS (2)
  1. BIOTIN [Concomitant]
     Active Substance: BIOTIN
  2. OCREVUS [Suspect]
     Active Substance: OCRELIZUMAB
     Indication: MULTIPLE SCLEROSIS
     Dates: start: 20200612

REACTIONS (2)
  - Alopecia [None]
  - Pain of skin [None]

NARRATIVE: CASE EVENT DATE: 20210125
